FAERS Safety Report 4485577-2 (Version None)
Quarter: 2004Q4

REPORT INFORMATION
  Report Type: 
  Country: None (occurrence: None)
  Receive Date: 20041021
  Receipt Date: 20041008
  Transmission Date: 20050328
  Serious: Yes (Life-Threatening)
  Sender: FDA-Public Use
  Company Number: D01200403916

PATIENT
  Age: 40 Year
  Sex: Male

DRUGS (9)
  1. (RASBURICASE) - SOLUTION - 0.2 MG/KG [Suspect]
     Indication: HYPERURICAEMIA
     Dosage: 0.2 MG/KG QD INTRAVENOUS NOS
     Route: 042
     Dates: start: 20040924, end: 20040926
  2. DECADRON [Concomitant]
  3. ONDANSETRON [Concomitant]
  4. PROCHLORPERAZINE [Concomitant]
  5. CYTARABINE [Concomitant]
  6. MITOXANTRONE [Concomitant]
  7. FUROSEMIDE [Concomitant]
  8. ZOLPIDEM TARTRATE [Concomitant]
  9. CEFTAZIDIME [Concomitant]

REACTIONS (2)
  - ASPARTATE AMINOTRANSFERASE INCREASED [None]
  - BLOOD LACTATE DEHYDROGENASE INCREASED [None]
